FAERS Safety Report 7251337-2 (Version None)
Quarter: 2011Q1

REPORT INFORMATION
  Report Type: 
  Country: None (occurrence: None)
  Receive Date: 20110128
  Receipt Date: 20110118
  Transmission Date: 20110831
  Serious: Yes (Other)
  Sender: FDA-Public Use
  Company Number: US-PFIZER INC-2011012441

PATIENT
  Sex: Female
  Weight: 57.596 kg

DRUGS (6)
  1. CELEBREX [Suspect]
     Dosage: 200 MG, UNK
     Route: 048
     Dates: start: 20110109, end: 20110113
  2. HYDROCHLOROTHIAZIDE [Concomitant]
     Indication: HYPERTENSION
     Dosage: 25 MG, 1X/DAY
     Route: 048
  3. CELEBREX [Suspect]
     Indication: OSTEOARTHRITIS
     Dosage: 100 MG, 3X/DAY
     Route: 048
     Dates: start: 20101201
  4. FLUOXETINE [Concomitant]
     Indication: ANXIETY
     Dosage: 60 MG, 1X/DAY
     Route: 048
  5. DIAZEPAM [Concomitant]
     Indication: ANXIETY
     Dosage: 10 MG, 1X/DAY
     Route: 048
  6. XOPENEX [Concomitant]
     Indication: DYSPNOEA
     Dosage: 1.25 MG, 1X/DAY

REACTIONS (1)
  - HYPERSENSITIVITY [None]
